FAERS Safety Report 4696715-0 (Version None)
Quarter: 2005Q2

REPORT INFORMATION
  Report Type: 
  Country: None (occurrence: None)
  Receive Date: 20050620
  Receipt Date: 20050610
  Transmission Date: 20051028
  Serious: Yes (Other)
  Sender: FDA-Public Use
  Company Number: 2005US-00551

PATIENT
  Age: 44 Year
  Sex: Female

DRUGS (4)
  1. CIPROFLOXACIN [Suspect]
     Indication: PYELONEPHRITIS
     Dosage: 500 MG, BID
  2. SOTALOL HCL [Concomitant]
  3. DIGOXIN [Concomitant]
  4. WARFARIN [Concomitant]

REACTIONS (4)
  - DIZZINESS [None]
  - ELECTROCARDIOGRAM QT PROLONGED [None]
  - SYNCOPE [None]
  - TORSADE DE POINTES [None]
